FAERS Safety Report 8818842 (Version 1)
Quarter: 2012Q4

REPORT INFORMATION
  Report Type: 
  Country: BR (occurrence: BR)
  Receive Date: 20121001
  Receipt Date: 20121001
  Transmission Date: 20130627
  Serious: Yes (Death, Congenital Anomaly)
  Sender: FDA-Public Use
  Company Number: BR-JNJFOC-20120911465

PATIENT
  Age: 8 Day
  Sex: Female

DRUGS (1)
  1. EVRA [Suspect]
     Indication: FOETAL EXPOSURE DURING PREGNANCY
     Route: 064
     Dates: start: 2008, end: 200811

REACTIONS (1)
  - Anencephaly [Fatal]
